FAERS Safety Report 12236921 (Version 5)
Quarter: 2016Q3

REPORT INFORMATION
  Report Type: Report from Study
  Country: DE (occurrence: DE)
  Receive Date: 20160405
  Receipt Date: 20160804
  Transmission Date: 20161109
  Serious: Yes (Hospitalization)
  Sender: FDA-Public Use
  Company Number: DE-TEVA-649346ACC

PATIENT
  Sex: Female

DRUGS (18)
  1. BENDAMUSTINE HYDROCHLORIDE. [Suspect]
     Active Substance: BENDAMUSTINE HYDROCHLORIDE
     Dosage: 70 MG/M2, CYCLIC (C3 D1)
     Route: 042
     Dates: start: 20160215
  2. BENDAMUSTINE HYDROCHLORIDE. [Suspect]
     Active Substance: BENDAMUSTINE HYDROCHLORIDE
     Dosage: 70 MG/M2, CYCLIC (C4 D8)
     Route: 042
     Dates: start: 20160321
  3. DEXAMETHASONE. [Suspect]
     Active Substance: DEXAMETHASONE
     Indication: PLASMA CELL MYELOMA
     Dosage: 20 MG, CYCLIC (4 CYCLES)
     Route: 048
     Dates: start: 20151221, end: 20160322
  4. EFEROX [Concomitant]
     Active Substance: LEVOTHYROXINE SODIUM
     Indication: PRODUCT USED FOR UNKNOWN INDICATION
     Dosage: 50 MILLIGRAM DAILY; 50 MG, ONCE DAILY (1-0-0)
     Route: 065
     Dates: start: 2009
  5. METFORMIN [Concomitant]
     Active Substance: METFORMIN HYDROCHLORIDE
     Indication: PRODUCT USED FOR UNKNOWN INDICATION
     Dosage: 1000 MG, UNKNOWN FREQ. (0-0-1/2)
     Route: 065
     Dates: start: 20151112
  6. BENDAMUSTINE HYDROCHLORIDE. [Suspect]
     Active Substance: BENDAMUSTINE HYDROCHLORIDE
     Dosage: 70 MG/M2, CYCLIC (C4 D1)
     Route: 042
     Dates: start: 20160314
  7. BENDAMUSTINE HYDROCHLORIDE. [Suspect]
     Active Substance: BENDAMUSTINE HYDROCHLORIDE
     Dosage: 70 MG/M2, CYCLIC (C2 D1)
     Route: 042
     Dates: start: 20160118
  8. CARFILZOMIB [Suspect]
     Active Substance: CARFILZOMIB
     Indication: PLASMA CELL MYELOMA
     Dosage: 27 MG/M2, CYCLIC (4 CYCLES)
     Route: 042
     Dates: start: 20151221, end: 20160322
  9. ACICLOVIR [Concomitant]
     Active Substance: ACYCLOVIR
     Indication: PRODUCT USED FOR UNKNOWN INDICATION
     Dosage: 400 MILLIGRAM DAILY; 400 MG, ONCE DAILY (1-0-1)
     Route: 065
     Dates: start: 20151221
  10. COTRIM [Concomitant]
     Active Substance: SULFAMETHOXAZOLE\TRIMETHOPRIM
     Indication: PRODUCT USED FOR UNKNOWN INDICATION
     Dosage: 411.4286 MILLIGRAM DAILY; 960 MG, THRICE WEEKLY (MONDAY, WEDNESDAY, FRIDAY 0-1-0)
     Route: 065
     Dates: start: 2009
  11. PANTOZOL [Concomitant]
     Active Substance: PANTOPRAZOLE SODIUM
     Indication: PRODUCT USED FOR UNKNOWN INDICATION
     Dosage: 40 MILLIGRAM DAILY; 40 MG, ONCE DAILY  (1-0-0)
     Route: 065
     Dates: start: 2009
  12. BENDAMUSTINE HYDROCHLORIDE. [Suspect]
     Active Substance: BENDAMUSTINE HYDROCHLORIDE
     Indication: PLASMA CELL MYELOMA
     Dosage: 70 MG/M2, CYCLIC (C1 D1)
     Route: 042
     Dates: start: 20151221
  13. BENDAMUSTINE HYDROCHLORIDE. [Suspect]
     Active Substance: BENDAMUSTINE HYDROCHLORIDE
     Dosage: 70 MG/M2, CYCLIC (C1 D8)
     Route: 042
     Dates: start: 20151228
  14. ATORVASTATIN [Concomitant]
     Active Substance: ATORVASTATIN
     Indication: PRODUCT USED FOR UNKNOWN INDICATION
     Dosage: 20 MILLIGRAM DAILY; 20 MG, ONCE DAILY (0-0-1)
     Route: 065
     Dates: start: 2009
  15. BENDAMUSTINE HYDROCHLORIDE. [Suspect]
     Active Substance: BENDAMUSTINE HYDROCHLORIDE
     Dosage: 70 MG/M2, CYCLIC (C2 D8)
     Route: 042
     Dates: start: 20160125
  16. BENDAMUSTINE HYDROCHLORIDE. [Suspect]
     Active Substance: BENDAMUSTINE HYDROCHLORIDE
     Dosage: 70 MG/M2, CYCLIC (C3 D8)
     Route: 042
     Dates: start: 20160222
  17. CIPROBAY                           /00697201/ [Concomitant]
     Active Substance: CIPROFLOXACIN
     Indication: PRODUCT USED FOR UNKNOWN INDICATION
     Dosage: 250 MILLIGRAM DAILY; 250 MG, ONCE DAILY (1-0-1)
     Route: 065
     Dates: start: 20151221
  18. NEBIVOLOL. [Concomitant]
     Active Substance: NEBIVOLOL
     Indication: PRODUCT USED FOR UNKNOWN INDICATION
     Dosage: 5 MILLIGRAM DAILY; 5 MG, ONCE DAILY (1-0-0)
     Route: 065
     Dates: start: 2009

REACTIONS (2)
  - Pyrexia [Recovered/Resolved]
  - Pulmonary embolism [Not Recovered/Not Resolved]

NARRATIVE: CASE EVENT DATE: 20160330
